FAERS Safety Report 6314055-0 (Version None)
Quarter: 2009Q3

REPORT INFORMATION
  Report Type: 
  Country: None (occurrence: None)
  Receive Date: 20090818
  Receipt Date: 20090813
  Transmission Date: 20100115
  Serious: Yes (Other)
  Sender: FDA-Public Use
  Company Number: GB-JNJCH-2009017581

PATIENT
  Sex: Male
  Weight: 65 kg

DRUGS (1)
  1. REGAINE FOR MEN GEL [Suspect]
     Indication: ALOPECIA
     Dosage: TEXT:SMALL AMOUNT ONCE
     Route: 061
     Dates: start: 20090620, end: 20090620

REACTIONS (20)
  - CONDITION AGGRAVATED [None]
  - DEPRESSION [None]
  - DISCOMFORT [None]
  - DYSURIA [None]
  - EATING DISORDER [None]
  - EMOTIONAL DISTRESS [None]
  - ERECTILE DYSFUNCTION [None]
  - GROIN PAIN [None]
  - HAIR DISORDER [None]
  - IMPAIRED WORK ABILITY [None]
  - INSOMNIA [None]
  - MALAISE [None]
  - PALPITATIONS [None]
  - PRODUCT QUALITY ISSUE [None]
  - QUALITY OF LIFE DECREASED [None]
  - RASH [None]
  - SKIN DISORDER [None]
  - STRESS [None]
  - SUICIDAL IDEATION [None]
  - WEIGHT DECREASED [None]
